FAERS Safety Report 6761309-X (Version None)
Quarter: 2010Q2

REPORT INFORMATION
  Report Type: 
  Country: None (occurrence: None)
  Receive Date: 20100608
  Receipt Date: 20100517
  Transmission Date: 20101027
  Serious: Yes (Other)
  Sender: FDA-Public Use
  Company Number: PHFR2010GB00650

PATIENT
  Age: 6 Month

DRUGS (1)
  1. NEORAL [Suspect]
     Indication: HISTIOCYTOSIS HAEMATOPHAGIC
     Dosage: 12 MG, UNK

REACTIONS (2)
  - BONE MARROW DISORDER [None]
  - DRUG LEVEL FLUCTUATING [None]
